FAERS Safety Report 11226144 (Version 1)
Quarter: 2015Q2

REPORT INFORMATION
  Report Type: Spontaneous
  Country: US (occurrence: US)
  Receive Date: 20150629
  Receipt Date: 20150629
  Transmission Date: 20150821
  Serious: Yes (Death, Congenital Anomaly, Other)
  Sender: FDA-Public Use
  Company Number: US-APOTEX-2015AP010004

PATIENT

DRUGS (1)
  1. PAXIL [Suspect]
     Active Substance: PAROXETINE HYDROCHLORIDE
     Indication: PRODUCT USED FOR UNKNOWN INDICATION
     Dosage: UNK
     Route: 064

REACTIONS (6)
  - Premature baby [Unknown]
  - Heart disease congenital [Unknown]
  - Foetal exposure during pregnancy [Unknown]
  - Death [Fatal]
  - Foetal heart rate abnormal [Unknown]
  - Trisomy 21 [Unknown]

NARRATIVE: CASE EVENT DATE: 19981029
